FAERS Safety Report 7680200-8 (Version None)
Quarter: 2011Q3

REPORT INFORMATION
  Report Type: 
  Country: None (occurrence: None)
  Receive Date: 20110812
  Receipt Date: 20110808
  Transmission Date: 20111222
  Serious: Yes (Other)
  Sender: FDA-Public Use
  Company Number: AU-ROCHE-795577

PATIENT
  Sex: Female

DRUGS (2)
  1. OXALIPLATIN [Suspect]
     Route: 065
  2. XELODA [Suspect]
     Route: 065

REACTIONS (3)
  - DIHYDROPYRIMIDINE DEHYDROGENASE DEFICIENCY [None]
  - MUCOSAL INFLAMMATION [None]
  - DIARRHOEA [None]
